FAERS Safety Report 5455415-X (Version None)
Quarter: 2007Q3

REPORT INFORMATION
  Report Type: 
  Country: None (occurrence: None)
  Receive Date: 20070918
  Receipt Date: 20070330
  Transmission Date: 20080115
  Serious: Yes (Other)
  Sender: FDA-Public Use
  Company Number: US-ASTRAZENECA-2006UW20930

PATIENT
  Age: 467 Month
  Sex: Female
  Weight: 84.1 kg

DRUGS (3)
  1. SEROQUEL [Suspect]
     Indication: SLEEP DISORDER
     Route: 048
     Dates: start: 20010101, end: 20070101
  2. NAVANE [Concomitant]
     Dates: start: 20010201
  3. RISPERDAL [Concomitant]

REACTIONS (3)
  - METABOLIC DISORDER [None]
  - OBESITY [None]
  - TARDIVE DYSKINESIA [None]
